FAERS Safety Report 8309957-X (Version None)
Quarter: 2012Q2

REPORT INFORMATION
  Report Type: 
  Country: None (occurrence: None)
  Receive Date: 20120423
  Receipt Date: 20120413
  Transmission Date: 20120825
  Serious: No
  Sender: FDA-Public Use
  Company Number: 2012-00108

PATIENT
  Sex: Male

DRUGS (1)
  1. ZICAM COLD REMEDY ORAL MIST [Suspect]

REACTIONS (1)
  - AGEUSIA [None]
